FAERS Safety Report 7682304-2 (Version None)
Quarter: 2011Q3

REPORT INFORMATION
  Report Type: 
  Country: None (occurrence: None)
  Receive Date: 20110810
  Receipt Date: 20110802
  Transmission Date: 20111222
  Serious: Yes (Death, Hospitalization)
  Sender: FDA-Public Use
  Company Number: 2011-2535

PATIENT
  Age: 63 Year
  Sex: Male

DRUGS (6)
  1. SOMATULINE DEPOT [Suspect]
     Indication: NEUROENDOCRINE TUMOUR
     Dosage: 120 MG (120 MG), INTRAMUSCULAR
     Route: 030
     Dates: start: 20110603, end: 20110628
  2. RADIATION THERAPY (THERAPEUTIC RADIOPHARMACEUTICALS) [Suspect]
     Indication: PRODUCT USED FOR UNKNOWN INDICATION
  3. ZOFRAN [Suspect]
     Indication: PRODUCT USED FOR UNKNOWN INDICATION
  4. DEXAMRTHASONE [Concomitant]
  5. APREPITANT [Concomitant]
  6. FUROSEMIDE [Concomitant]

REACTIONS (3)
  - NEUROENDOCRINE TUMOUR [None]
  - NEOPLASM PROGRESSION [None]
  - RENAL IMPAIRMENT [None]
